FAERS Safety Report 5368387-3 (Version None)
Quarter: 2007Q2

REPORT INFORMATION
  Report Type: 
  Country: None (occurrence: None)
  Receive Date: 20070622
  Receipt Date: 20070622
  Transmission Date: 20071010
  Serious: Yes (Life-Threatening, Hospitalization)
  Sender: FDA-Public Use
  Company Number: None

PATIENT
  Sex: Female
  Weight: 70 kg

DRUGS (11)
  1. WARFARIN SODIUM [Suspect]
     Indication: ATRIAL FIBRILLATION
     Dosage: 12MG  ONCE WEEKLY  PO
     Route: 048
  2. MECLIZINE [Concomitant]
  3. PROMETHAZINE [Concomitant]
  4. LEVOTHYROXINE SODIUM [Concomitant]
  5. GEMFIBROZIL [Concomitant]
  6. METFORMIN HCL [Concomitant]
  7. GLYBURIDE [Concomitant]
  8. ATORVASTATIN [Concomitant]
  9. RAMIPRIL [Concomitant]
  10. METOPROLOL SUCCINATE [Concomitant]
  11. REGULAR INSULIN [Concomitant]

REACTIONS (3)
  - CEREBELLAR HAEMORRHAGE [None]
  - COAGULOPATHY [None]
  - NAUSEA [None]
